FAERS Safety Report 11198933 (Version 6)
Quarter: 2015Q3

REPORT INFORMATION
  Report Type: Spontaneous
  Country: IT (occurrence: IT)
  Receive Date: 20150618
  Receipt Date: 20150825
  Transmission Date: 20151125
  Serious: Yes (Life-Threatening, Hospitalization)
  Sender: FDA-Public Use
  Company Number: IT-PFIZER INC-2015185731

PATIENT
  Age: 6 Year
  Sex: Male
  Weight: 18 kg

DRUGS (5)
  1. NUROFEN [Concomitant]
     Active Substance: IBUPROFEN
     Dosage: UNK
  2. TACHIPIRINA [Concomitant]
     Active Substance: ACETAMINOPHEN
     Dosage: UNK
  3. CEFODOX [Suspect]
     Active Substance: CEFPODOXIME PROXETIL
     Indication: EAR INFECTION
     Dosage: 10 ML, DAILY
     Route: 048
     Dates: start: 20150505
  4. NEODUPLAMOX [Suspect]
     Active Substance: AMOXICILLIN\CLAVULANATE POTASSIUM
     Indication: BRONCHITIS
     Dosage: 10 ML, DAILY
     Route: 065
     Dates: start: 20150325
  5. BENTELAN [Concomitant]
     Active Substance: BETAMETHASONE SODIUM PHOSPHATE
     Dosage: UNK

REACTIONS (3)
  - Pyrexia [Recovered/Resolved]
  - Toxic epidermal necrolysis [Recovered/Resolved]
  - Blister [Recovered/Resolved]

NARRATIVE: CASE EVENT DATE: 20150506
